FAERS Safety Report 10392965 (Version 2)
Quarter: 2014Q3

REPORT INFORMATION
  Report Type: Spontaneous
  Country: US (occurrence: US)
  Receive Date: 20140819
  Receipt Date: 20140819
  Transmission Date: 20150326
  Serious: Yes (Other)
  Sender: FDA-Public Use
  Company Number: US-TEVA-479589USA

PATIENT
  Age: 90 Year
  Sex: Female

DRUGS (10)
  1. AMLODIPINE [Concomitant]
     Active Substance: AMLODIPINE BESYLATE
  2. FLOVENT [Concomitant]
     Active Substance: FLUTICASONE PROPIONATE
     Dosage: PRN
  3. VITAMINS [Concomitant]
     Active Substance: VITAMINS
  4. IRON [Concomitant]
     Active Substance: IRON
  5. ALLOPURINOL. [Concomitant]
     Active Substance: ALLOPURINOL
  6. ALPRAZOLAM. [Concomitant]
     Active Substance: ALPRAZOLAM
     Dosage: PRN
  7. CLOPIDOGREL [Suspect]
     Active Substance: CLOPIDOGREL BISULFATE
  8. ATORVASTATIN [Concomitant]
     Active Substance: ATORVASTATIN
  9. FUROSEMIDE. [Concomitant]
     Active Substance: FUROSEMIDE
  10. PEPCID [Concomitant]
     Active Substance: FAMOTIDINE
     Indication: GASTROOESOPHAGEAL REFLUX DISEASE
     Dosage: PRN

REACTIONS (4)
  - Haemorrhage [Unknown]
  - Anaemia [Unknown]
  - Faeces discoloured [Unknown]
  - Contusion [Unknown]
